FAERS Safety Report 7719119-2 (Version None)
Quarter: 2011Q3

REPORT INFORMATION
  Report Type: 
  Country: None (occurrence: None)
  Receive Date: 20110830
  Receipt Date: 20110822
  Transmission Date: 20111222
  Serious: Yes (Hospitalization)
  Sender: FDA-Public Use
  Company Number: FR-PFIZER INC-2011200355

PATIENT
  Age: 79 Year
  Sex: Female

DRUGS (15)
  1. PAROXETINE HCL [Suspect]
     Dosage: 0.5 DF DAILY
     Route: 048
     Dates: start: 20110701
  2. ACETAMINOPHEN [Suspect]
     Dosage: 500 MG, UNK
     Route: 048
     Dates: start: 20100224
  3. FORLAX [Suspect]
     Dosage: 1 DF DAILY
     Route: 048
     Dates: start: 20100224
  4. BONIVA [Concomitant]
     Dosage: UNK
     Dates: end: 20110401
  5. XANAX [Concomitant]
     Dosage: OCCASIONAL INTAKE
  6. EQUANIL [Concomitant]
     Dosage: 250 MG, UNK
     Dates: end: 20110401
  7. PANTOPRAZOLE SODIUM [Suspect]
     Dosage: 1 DF DAILY
     Route: 048
     Dates: start: 20100224
  8. ESIDRIX [Concomitant]
     Dosage: UNK
     Dates: end: 20110401
  9. ASPIRIN [Suspect]
     Dosage: 1 DF DAILY
     Route: 048
     Dates: start: 20100723
  10. BISOPROLOL FUMARATE [Suspect]
     Dosage: 1 DF DAILY
     Route: 048
     Dates: start: 20101024
  11. PAROXETINE HCL [Suspect]
     Dosage: 1 DF DAILY
     Route: 048
     Dates: start: 20100706, end: 20110701
  12. CRESTOR [Suspect]
     Dosage: 10 MG DAILY
     Route: 048
     Dates: start: 20110424
  13. ATORVASTATIN CALCIUM [Concomitant]
     Dosage: 10 MG, UNK
     Dates: end: 20110424
  14. LEXOMIL [Concomitant]
     Dosage: OCCASIONAL INTAKE
     Dates: end: 20110401
  15. ZOLPIDEM TARTRATE [Suspect]
     Dosage: 1 DF DAILY
     Route: 048
     Dates: start: 20100224

REACTIONS (3)
  - PRURIGO [None]
  - PRURITUS [None]
  - ECZEMA [None]
